FAERS Safety Report 5287925-2 (Version None)
Quarter: 2007Q1

REPORT INFORMATION
  Report Type: 
  Country: None (occurrence: None)
  Receive Date: 20070330
  Receipt Date: 20070323
  Transmission Date: 20070707
  Serious: Yes (Death)
  Sender: FDA-Public Use
  Company Number: S06-USA-04663-01

PATIENT
  Age: 34 Year
  Sex: Male

DRUGS (5)
  1. LEXAPRO [Suspect]
     Indication: ANXIETY
     Dosage: 10 MG QD PO
     Route: 048
     Dates: start: 20041011, end: 20041017
  2. LEXAPRO [Suspect]
     Indication: DEPRESSION
     Dosage: 10 MG QD PO
     Route: 048
     Dates: start: 20041011, end: 20041017
  3. NAPROXEN SODIUM [Concomitant]
  4. AMBIEN [Concomitant]
  5. SMZ/TMP DS 800-160 (SULFAMETHOXAZOLE800 MG/TRIMETHOPRIM 160 MG) [Concomitant]

REACTIONS (8)
  - COMPLETED SUICIDE [None]
  - CONDITION AGGRAVATED [None]
  - DEPRESSION [None]
  - FEELING JITTERY [None]
  - INJURY ASPHYXIATION [None]
  - INSOMNIA [None]
  - MOOD SWINGS [None]
  - PARANOIA [None]
